FAERS Safety Report 8783272 (Version 2)
Quarter: 2013Q4

REPORT INFORMATION
  Report Type: Spontaneous
  Country: US (occurrence: US)
  Receive Date: 20120913
  Receipt Date: 20131010
  Transmission Date: 20140711
  Serious: Yes (Hospitalization, Congenital Anomaly)
  Sender: FDA-Public Use
  Company Number: US-JNJFOC-20120904661

PATIENT
  Age: 4 Month
  Sex: Male

DRUGS (4)
  1. TOPAMAX [Suspect]
     Indication: FOETAL EXPOSURE DURING PREGNANCY
     Route: 064
     Dates: start: 20050423, end: 20050615
  2. TOPAMAX [Suspect]
     Indication: FOETAL EXPOSURE DURING PREGNANCY
     Route: 064
  3. AVONEX [Suspect]
     Indication: FOETAL EXPOSURE DURING PREGNANCY
     Route: 064
  4. COPAXONE [Suspect]
     Indication: FOETAL EXPOSURE DURING PREGNANCY
     Route: 064

REACTIONS (5)
  - Autism [Unknown]
  - Premature baby [Not Recovered/Not Resolved]
  - Cleft palate [Unknown]
  - Haemangioma [Recovering/Resolving]
  - Hearing impaired [Recovering/Resolving]
